FAERS Safety Report 6398483-3 (Version None)
Quarter: 2009Q4

REPORT INFORMATION
  Report Type: 
  Country: None (occurrence: None)
  Receive Date: 20091013
  Receipt Date: 20091005
  Transmission Date: 20100525
  Serious: Yes (Hospitalization)
  Sender: FDA-Public Use
  Company Number: B0574667A

PATIENT
  Sex: Male
  Weight: 67 kg

DRUGS (6)
  1. VALTREX [Suspect]
     Indication: HERPES ZOSTER
     Dosage: 1G THREE TIMES PER DAY
     Route: 048
     Dates: start: 20090507, end: 20090511
  2. VOLTAREN [Suspect]
     Indication: DRUG USE FOR UNKNOWN INDICATION
     Route: 048
     Dates: start: 20090507, end: 20090511
  3. ASPIRIN [Suspect]
     Indication: PAIN
     Route: 065
     Dates: start: 20090502, end: 20090502
  4. UNKNOWN [Suspect]
     Indication: PAIN
     Route: 065
     Dates: start: 20090502, end: 20090507
  5. ADALAT CC [Concomitant]
     Indication: HYPERTENSION
     Dosage: 40MG PER DAY
     Route: 048
     Dates: end: 20090511
  6. MICARDIS [Concomitant]
     Dosage: 40MG PER DAY
     Route: 048
     Dates: end: 20090511

REACTIONS (13)
  - ABNORMAL BEHAVIOUR [None]
  - BLOOD CREATININE INCREASED [None]
  - DRUG DEPENDENCE [None]
  - DYSARTHRIA [None]
  - ENCEPHALITIS VIRAL [None]
  - ENCEPHALOPATHY [None]
  - HAEMODIALYSIS [None]
  - HALLUCINATION [None]
  - HALLUCINATION, VISUAL [None]
  - HERPES ZOSTER [None]
  - INCOHERENT [None]
  - PSYCHIATRIC SYMPTOM [None]
  - RENAL IMPAIRMENT [None]
